FAERS Safety Report 10757155 (Version 2)
Quarter: 2015Q1

REPORT INFORMATION
  Report Type: Spontaneous
  Country: CA (occurrence: None)
  Receive Date: 20150130
  Receipt Date: 20150219
  Transmission Date: 20150721
  Serious: Yes (Death)
  Sender: FDA-Public Use
  Company Number: 2015CA000745

PATIENT
  Sex: Male

DRUGS (6)
  1. ELIGARD [Suspect]
     Active Substance: LEUPROLIDE ACETATE
     Indication: PROSTATE CANCER
     Dates: start: 20140918
  2. MIRTAZAPINE (MIRTAZAPINE) [Concomitant]
     Active Substance: MIRTAZAPINE
  3. VITAMIN D3 [Concomitant]
     Active Substance: CHOLECALCIFEROL
  4. DIPHENHYDRAMINE (DIPHENHYDRAMINE) [Concomitant]
     Active Substance: DIPHENHYDRAMINE
  5. ATORVASTATIN (ATORVASTATIN) [Concomitant]
     Active Substance: ATORVASTATIN
  6. VITAMIN B12 /00056201/ (CYANOCOBALAMIN) [Concomitant]

REACTIONS (3)
  - Death [None]
  - Cardiac arrest [None]
  - Vascular dementia [None]
